FAERS Safety Report 14726875 (Version 5)
Quarter: 2018Q2

REPORT INFORMATION
  Report Type: Spontaneous
  Country: ZA (occurrence: ZA)
  Receive Date: 20180406
  Receipt Date: 20180426
  Transmission Date: 20180711
  Serious: Yes (Other)
  Sender: FDA-Public Use
  Company Number: ZA-TORRENT-00000070

PATIENT
  Age: 58 Year
  Sex: Male
  Weight: 80 kg

DRUGS (2)
  1. RIVOTRIL [Concomitant]
     Active Substance: CLONAZEPAM
     Indication: PRODUCT USED FOR UNKNOWN INDICATION
     Dosage: UNKNOWN
     Route: 048
  2. LAMITOR [Suspect]
     Active Substance: LAMOTRIGINE
     Indication: EPILEPSY
     Dosage: 300 MG IN MORNING AND 250 MG IN AFTERNOON; FOR A FEW WEEKS.
     Route: 048
     Dates: end: 20180327

REACTIONS (4)
  - Overdose [Unknown]
  - Generalised tonic-clonic seizure [Not Recovered/Not Resolved]
  - Dyskinesia [Not Recovered/Not Resolved]
  - Petit mal epilepsy [Not Recovered/Not Resolved]

NARRATIVE: CASE EVENT DATE: 20180327
